FAERS Safety Report 5854550-1 (Version None)
Quarter: 2008Q3

REPORT INFORMATION
  Report Type: 
  Country: None (occurrence: None)
  Receive Date: 20080822
  Receipt Date: 20070922
  Transmission Date: 20090109
  Serious: No
  Sender: FDA-Public Use
  Company Number: US-ABBOTT-07P-163-0418125-00

PATIENT
  Sex: Female
  Weight: 3.178 kg

DRUGS (1)
  1. SYNTHROID [Suspect]
     Indication: CONGENITAL HYPOTHYROIDISM
     Route: 048
     Dates: start: 20070920

REACTIONS (2)
  - INFANTILE SPITTING UP [None]
  - REFUSAL OF TREATMENT BY PATIENT [None]
